FAERS Safety Report 14005270 (Version 1)
Quarter: 2017Q3

REPORT INFORMATION
  Report Type: Spontaneous
  Country: US (occurrence: US)
  Receive Date: 20170922
  Receipt Date: 20170922
  Transmission Date: 20171128
  Serious: Yes (Other)
  Sender: FDA-Public Use
  Company Number: US-SA-2017SA174031

PATIENT
  Age: 52 Year
  Sex: Female
  Weight: 77.11 kg

DRUGS (4)
  1. VITAMIN D [Concomitant]
     Active Substance: CHOLECALCIFEROL
     Route: 065
  2. HYDROCHLOROTHIAZIDE/TRIAMTERENE [Concomitant]
     Dosage: DOSE: 31.5 (UNITS: UNKNOWN)
     Route: 065
     Dates: start: 20160203
  3. ICY HOT [Suspect]
     Active Substance: MENTHOL\METHYL SALICYLATE
     Indication: MYALGIA
     Route: 065
     Dates: start: 20150712
  4. GABAPENTIN. [Concomitant]
     Active Substance: GABAPENTIN
     Route: 065

REACTIONS (10)
  - Application site irritation [Unknown]
  - Application site vesicles [Unknown]
  - Erythema [Unknown]
  - Musculoskeletal discomfort [Unknown]
  - Burns second degree [Unknown]
  - Application site pain [Unknown]
  - Pain [Unknown]
  - Hyperaesthesia [Unknown]
  - Musculoskeletal pain [Unknown]
  - Limb discomfort [Unknown]

NARRATIVE: CASE EVENT DATE: 20150712
